FAERS Safety Report 5465023-2 (Version None)
Quarter: 2007Q3

REPORT INFORMATION
  Report Type: 
  Country: None (occurrence: None)
  Receive Date: 20070820
  Receipt Date: 20060101
  Transmission Date: 20080115
  Serious: No
  Sender: FDA-Public Use
  Company Number: TPA2007A00815

PATIENT
  Age: 11 Year

DRUGS (1)
  1. ROZEREM [Suspect]
     Dosage: 80 MG, QHS, PER ORAL
     Route: 048

REACTIONS (2)
  - NO ADVERSE REACTION [None]
  - OVERDOSE [None]
